FAERS Safety Report 10094980 (Version 2)
Quarter: 2014Q2

REPORT INFORMATION
  Report Type: Report from Study
  Country: JP (occurrence: JP)
  Receive Date: 20140422
  Receipt Date: 20140527
  Transmission Date: 20141212
  Serious: Yes (Life-Threatening)
  Sender: FDA-Public Use
  Company Number: JP-UCBSA-118380

PATIENT
  Age: 53 Year
  Sex: Male

DRUGS (2)
  1. E KEPPRA [Suspect]
     Indication: SIMPLE PARTIAL SEIZURES
     Route: 048
     Dates: start: 20130925, end: 20140129
  2. DEPAKINE [Concomitant]
     Route: 048
     Dates: end: 20140129

REACTIONS (1)
  - Brain neoplasm [Unknown]
